FAERS Safety Report 7239406-4 (Version None)
Quarter: 2011Q1

REPORT INFORMATION
  Report Type: 
  Country: None (occurrence: None)
  Receive Date: 20110121
  Receipt Date: 20101210
  Transmission Date: 20110831
  Serious: Yes (Hospitalization)
  Sender: FDA-Public Use
  Company Number: CO-AMGEN-QUU440750

PATIENT

DRUGS (14)
  1. ETANERCEPT [Suspect]
     Indication: OFF LABEL USE
     Dosage: 50 MG, QWK
     Route: 058
     Dates: start: 20080901, end: 20100811
  2. LOVASTATIN [Concomitant]
     Dosage: 20 MG, QD
     Dates: start: 20080101
  3. LOVASTATIN [Concomitant]
     Dosage: UNK
     Route: 065
     Dates: start: 20080101
  4. ETANERCEPT [Suspect]
     Dosage: 50 MG, 1X/WK
     Route: 058
     Dates: start: 20080901, end: 20100811
  5. URSACOL [Concomitant]
     Route: 065
  6. LOVASTATIN [Concomitant]
     Dosage: UNK
     Route: 065
     Dates: start: 20080101
  7. CALCIUM [Concomitant]
     Dosage: UNK UNK, UNK
  8. URSACOL [Concomitant]
     Indication: AUTOIMMUNE DISORDER
     Dosage: 900 MG, QD
  9. EUTIROX [Concomitant]
     Dosage: UNK
     Route: 065
     Dates: start: 20080101
  10. ETANERCEPT [Suspect]
     Dosage: 50 MG, 1X/WK
     Route: 058
     Dates: start: 20080901, end: 20100914
  11. CALCIUM [Concomitant]
     Route: 065
  12. URSACOL [Concomitant]
     Route: 065
  13. LEVOTHYROXINE SODIUM [Concomitant]
     Dosage: 25 A?G, QD
     Dates: start: 20080101
  14. CALCIUM [Concomitant]
     Route: 065

REACTIONS (7)
  - BACK PAIN [None]
  - PNEUMONIA [None]
  - PYREXIA [None]
  - FATIGUE [None]
  - COUGH [None]
  - MALAISE [None]
  - URINARY TRACT INFECTION [None]
